FAERS Safety Report 20772210 (Version 1)
Quarter: 2022Q2

REPORT INFORMATION
  Report Type: Report from Study
  Country: US (occurrence: US)
  Receive Date: 20220502
  Receipt Date: 20220502
  Transmission Date: 20220720
  Serious: Yes (Death, Hospitalization, Other)
  Sender: FDA-Public Use
  Company Number: US-BRISTOL-MYERS SQUIBB COMPANY-2022-029409

PATIENT
  Age: 77 Year
  Sex: Female
  Weight: 70.8 kg

DRUGS (2)
  1. NIVOLUMAB [Suspect]
     Active Substance: NIVOLUMAB
     Indication: Oesophageal adenocarcinoma
     Dosage: ON DAY 1
     Route: 042
     Dates: start: 20211004, end: 20220314
  2. IPILIMUMAB [Suspect]
     Active Substance: IPILIMUMAB
     Indication: Oesophageal adenocarcinoma
     Dosage: ON DAY 1 OF CYCLES 1, 4, 7, AND 10
     Route: 042
     Dates: start: 20211004, end: 20220222

REACTIONS (1)
  - Myasthenia gravis [Fatal]

NARRATIVE: CASE EVENT DATE: 20220410
